FAERS Safety Report 7450604-7 (Version None)
Quarter: 2011Q2

REPORT INFORMATION
  Report Type: 
  Country: None (occurrence: None)
  Receive Date: 20110502
  Receipt Date: 20101119
  Transmission Date: 20111010
  Serious: Yes (Other)
  Sender: FDA-Public Use
  Company Number: US-BAYER-200936464NA

PATIENT
  Age: 78 Year
  Sex: Female
  Weight: 77.3 kg

DRUGS (24)
  1. PROHANCE [Suspect]
     Indication: PRODUCT USED FOR UNKNOWN INDICATION
  2. OPTIMARK [Suspect]
     Indication: PRODUCT USED FOR UNKNOWN INDICATION
  3. NITROGLYCERIN [Concomitant]
  4. ASPIRIN [Concomitant]
  5. GADOLINIUM IN UNSPECIFIED DRUG [Suspect]
     Dosage: 26 ML
     Dates: start: 20070517
  6. METOPROLOL SUCCINATE [Concomitant]
  7. OMNISCAN [Suspect]
     Indication: PRODUCT USED FOR UNKNOWN INDICATION
     Dates: start: 20050915
  8. GADOLINIUM IN UNSPECIFIED DRUG [Suspect]
     Dosage: UNK
     Dates: start: 20000919
  9. FERROUS SULFATE TAB [Concomitant]
  10. MAGNEVIST [Suspect]
  11. MULTIHANCE [Suspect]
     Dates: start: 20070517
  12. GADOLINIUM IN UNSPECIFIED DRUG [Suspect]
     Dosage: UNK
     Dates: start: 20050915
  13. CARDIZEM CD [Concomitant]
  14. COZAAR [Concomitant]
  15. EPOGEN [Concomitant]
  16. PHOSLO [Concomitant]
  17. COUMADIN [Concomitant]
  18. MULTIHANCE [Suspect]
     Indication: PRODUCT USED FOR UNKNOWN INDICATION
     Dates: start: 20070208
  19. NORVASC [Concomitant]
  20. GADOLINIUM IN UNSPECIFIED DRUG [Suspect]
     Dosage: 40 ML
     Dates: start: 20070208
  21. ADVAIR DISKUS 100/50 [Concomitant]
  22. MULTIHANCE [Suspect]
     Dates: start: 20070920
  23. GADOLINIUM IN UNSPECIFIED DRUG [Suspect]
     Dosage: 30 ML
     Dates: start: 20070920
  24. DIGOXIN [Concomitant]

REACTIONS (7)
  - FLUID RETENTION [None]
  - SCAR [None]
  - SWELLING [None]
  - PAIN [None]
  - SKIN INDURATION [None]
  - NEPHROGENIC SYSTEMIC FIBROSIS [None]
  - SKIN HYPOPIGMENTATION [None]
